FAERS Safety Report 8329214-5 (Version None)
Quarter: 2012Q2

REPORT INFORMATION
  Report Type: 
  Country: None (occurrence: None)
  Receive Date: 20120502
  Receipt Date: 20120427
  Transmission Date: 20120825
  Serious: Yes (Hospitalization)
  Sender: FDA-Public Use
  Company Number: DE-BAYER-2012-030322

PATIENT
  Age: 63 Year
  Sex: Female

DRUGS (1)
  1. ULTRAVIST 150 [Suspect]
     Indication: UROGRAM
     Dosage: 100 MG, ONCE
     Route: 042

REACTIONS (8)
  - ERYTHEMA [None]
  - CIRCULATORY COLLAPSE [None]
  - RASH [None]
  - DYSPNOEA [None]
  - FEELING HOT [None]
  - GENERALISED ERYTHEMA [None]
  - URTICARIA [None]
  - DIZZINESS [None]
